FAERS Safety Report 10881794 (Version 1)
Quarter: 2015Q1

REPORT INFORMATION
  Report Type: Spontaneous
  Country: US (occurrence: None)
  Receive Date: 20150227
  Receipt Date: 20150227
  Transmission Date: 20150721
  Serious: No
  Sender: FDA-Public Use
  Company Number: None

PATIENT
  Sex: Male

DRUGS (10)
  1. RISPERDAL [Suspect]
     Active Substance: RISPERIDONE
  2. RITALIN [Suspect]
     Active Substance: METHYLPHENIDATE HYDROCHLORIDE
  3. STRATTERA [Suspect]
     Active Substance: ATOMOXETINE HYDROCHLORIDE
  4. ADDERALL [Suspect]
     Active Substance: AMPHETAMINE ASPARTATE\AMPHETAMINE SULFATE\DEXTROAMPHETAMINE SACCHARATE\DEXTROAMPHETAMINE SULFATE
  5. ALBUTEROL. [Suspect]
     Active Substance: ALBUTEROL
  6. TRAZODONE [Suspect]
     Active Substance: TRAZODONE HYDROCHLORIDE
  7. CLONIDINE. [Suspect]
     Active Substance: CLONIDINE
  8. FOCALIN [Suspect]
     Active Substance: DEXMETHYLPHENIDATE HYDROCHLORIDE
  9. SEROQUEL [Suspect]
     Active Substance: QUETIAPINE FUMARATE
  10. DEPAKOTE [Suspect]
     Active Substance: DIVALPROEX SODIUM

REACTIONS (5)
  - Gynaecomastia [None]
  - Bowel movement irregularity [None]
  - Balance disorder [None]
  - Musculoskeletal disorder [None]
  - Feeling abnormal [None]
